FAERS Safety Report 12837077 (Version 1)
Quarter: 2016Q4

REPORT INFORMATION
  Report Type: Spontaneous
  Country: FR (occurrence: FR)
  Receive Date: 20161011
  Receipt Date: 20161011
  Transmission Date: 20170207
  Serious: Yes (Hospitalization)
  Sender: FDA-Public Use
  Company Number: PHHY2016FR139928

PATIENT
  Age: 84 Year
  Sex: Female
  Weight: 67 kg

DRUGS (13)
  1. PAROXETINE. [Concomitant]
     Active Substance: PAROXETINE
     Indication: PRODUCT USED FOR UNKNOWN INDICATION
     Dosage: 0.5 DF, QD (IN THE MORNING)
     Route: 048
  2. DUROGESIC [Concomitant]
     Active Substance: FENTANYL
     Indication: PRODUCT USED FOR UNKNOWN INDICATION
     Dosage: 1 DF, Q72H (12 MCG/H, 2.1 MG/5.25 CM2)
     Route: 062
  3. MOVICOL [Concomitant]
     Active Substance: POLYETHYLENE GLYCOL 3350\POTASSIUM CHLORIDE\SODIUM BICARBONATE\SODIUM CHLORIDE
     Indication: PRODUCT USED FOR UNKNOWN INDICATION
     Dosage: UNK UNK, BID (IN THE MORNING AND AT NOON)
     Route: 048
  4. VITAMIN C [Concomitant]
     Active Substance: ASCORBIC ACID
     Indication: PRODUCT USED FOR UNKNOWN INDICATION
     Dosage: UNK UNK, QD
     Route: 048
  5. MEDROL [Concomitant]
     Active Substance: METHYLPREDNISOLONE
     Indication: PRODUCT USED FOR UNKNOWN INDICATION
     Dosage: 100 MG, QW (IN THE MORNING WEEKLY (WEDNESDAY))
     Route: 065
  6. PRIMPERAN [Concomitant]
     Active Substance: METOCLOPRAMIDE HYDROCHLORIDE
     Indication: PRODUCT USED FOR UNKNOWN INDICATION
     Dosage: UNK UNK, QD
     Route: 048
  7. OROCAL D3 [Concomitant]
     Active Substance: CALCIUM CARBONATE\CHOLECALCIFEROL
     Indication: PRODUCT USED FOR UNKNOWN INDICATION
     Dosage: 3 TO 4 DF QD
     Route: 048
  8. ASPEGIC [Concomitant]
     Active Substance: ASPIRIN DL-LYSINE
     Indication: PRODUCT USED FOR UNKNOWN INDICATION
     Dosage: 1000 MG, QD, AT NOON
     Route: 048
  9. INEXIUM [Concomitant]
     Active Substance: ESOMEPRAZOLE
     Indication: PRODUCT USED FOR UNKNOWN INDICATION
     Dosage: 40 MG, QHS
     Route: 048
  10. ZOMETA [Suspect]
     Active Substance: ZOLEDRONIC ACID
     Indication: PLASMA CELL MYELOMA
     Dosage: 4 MG (0.0238 DF (1 DF EVERY 6 WEEKS))
     Route: 065
     Dates: end: 20160217
  11. REVLIMID [Concomitant]
     Active Substance: LENALIDOMIDE
     Indication: PRODUCT USED FOR UNKNOWN INDICATION
     Dosage: 15 MG, QHS
     Route: 065
  12. SOTALOL. [Concomitant]
     Active Substance: SOTALOL
     Indication: PRODUCT USED FOR UNKNOWN INDICATION
     Dosage: 80 MG, BID (0.5 DF IN THE MORNING AND 0.5 DF IN THE EVENING)
     Route: 048
  13. DIFFU K [Concomitant]
     Active Substance: POTASSIUM CHLORIDE
     Indication: PRODUCT USED FOR UNKNOWN INDICATION
     Dosage: 600 MG, QD, IN THE MORNING
     Route: 048

REACTIONS (6)
  - Decreased appetite [Recovered/Resolved]
  - Hypophosphataemia [Recovered/Resolved]
  - Hypocalcaemia [Recovered/Resolved]
  - Asthenia [Recovered/Resolved]
  - Hypomagnesaemia [Recovered/Resolved]
  - Inflammatory marker increased [Recovered/Resolved]

NARRATIVE: CASE EVENT DATE: 20160226
